FAERS Safety Report 8383361 (Version 5)
Quarter: 2013Q2

REPORT INFORMATION
  Report Type: Spontaneous
  Country: US (occurrence: US)
  Receive Date: 20120201
  Receipt Date: 20130405
  Transmission Date: 20140414
  Serious: Yes (Hospitalization, Congenital Anomaly)
  Sender: FDA-Public Use
  Company Number: US-GLAXOSMITHKLINE-A0930796A

PATIENT
  Age: 0 Year
  Sex: Female

DRUGS (3)
  1. PAXIL [Suspect]
     Indication: ANXIETY
     Dosage: 20MG PER DAY
     Route: 064
     Dates: start: 199902, end: 200212
  2. LEVOXYL [Concomitant]
  3. PRENATAL VITAMINS [Concomitant]

REACTIONS (7)
  - Cleft lip and palate [Unknown]
  - Talipes [Unknown]
  - Injury to brachial plexus due to birth trauma [Unknown]
  - Clavicle fracture [Unknown]
  - Congenital pseudarthrosis [Unknown]
  - Sleep apnoea syndrome [Unknown]
  - Foetal exposure during pregnancy [Unknown]
